FAERS Safety Report 5606343-8 (Version None)
Quarter: 2008Q1

REPORT INFORMATION
  Report Type: 
  Country: None (occurrence: None)
  Receive Date: 20080129
  Receipt Date: 20070709
  Transmission Date: 20080703
  Serious: No
  Sender: FDA-Public Use
  Company Number: A0662485A

PATIENT
  Sex: Female

DRUGS (5)
  1. BUPROPION HCL [Suspect]
     Indication: DEPRESSION
     Dosage: 150MG PER DAY
     Route: 048
     Dates: start: 20070707
  2. CYMBALTA [Suspect]
     Dates: start: 20060701, end: 20070705
  3. SYNTHROID [Concomitant]
  4. UNKNOWN MEDICATION [Concomitant]
  5. LORAZEPAM [Concomitant]

REACTIONS (4)
  - CRYING [None]
  - DIARRHOEA [None]
  - DIZZINESS [None]
  - PARAESTHESIA [None]
